FAERS Safety Report 5814237-8 (Version None)
Quarter: 2008Q3

REPORT INFORMATION
  Report Type: 
  Country: None (occurrence: None)
  Receive Date: 20080717
  Receipt Date: 20080708
  Transmission Date: 20090109
  Serious: Yes (Hospitalization)
  Sender: FDA-Public Use
  Company Number: AU-AMGEN-QUU291020

PATIENT
  Sex: Female
  Weight: 125 kg

DRUGS (4)
  1. NEULASTA [Suspect]
     Indication: CHEMOTHERAPY
     Route: 058
     Dates: start: 20080612
  2. FLUOROURACIL [Suspect]
  3. EPIRUBICIN [Suspect]
  4. CYCLOPHOSPHAMIDE [Suspect]

REACTIONS (1)
  - FEBRILE NEUTROPENIA [None]
